FAERS Safety Report 5832468-8 (Version None)
Quarter: 2008Q3

REPORT INFORMATION
  Report Type: 
  Country: None (occurrence: None)
  Receive Date: 20080804
  Receipt Date: 20080723
  Transmission Date: 20090109
  Serious: Yes (Life-Threatening, Hospitalization)
  Sender: FDA-Public Use
  Company Number: DE-ROCHE-577145

PATIENT
  Age: 68 Year
  Sex: Male

DRUGS (21)
  1. MYCOPHENOLATE MOFETIL [Suspect]
     Indication: DRUG USE FOR UNKNOWN INDICATION
     Route: 065
     Dates: start: 20070608
  2. MYCOPHENOLATE MOFETIL [Suspect]
     Route: 065
     Dates: start: 20080103
  3. VALGANCICLOVIR HCL [Suspect]
     Dosage: DOSE : 2X900MG PER DAY ADJUSTED TO RENAL FUNCTION FOR AT LEAST FOR 14 DAYS AS PER PROTOCOL.
     Route: 048
     Dates: start: 20070920
  4. PREDNISONE [Suspect]
     Indication: DRUG USE FOR UNKNOWN INDICATION
     Dosage: DRUG REPORTED AS: PREDNISON.
     Route: 065
     Dates: start: 20070608
  5. PREDNISONE [Suspect]
     Route: 065
     Dates: start: 20080218
  6. TACROLIMUS [Suspect]
     Indication: DRUG USE FOR UNKNOWN INDICATION
     Route: 065
     Dates: start: 20070608
  7. TACROLIMUS [Suspect]
     Route: 065
     Dates: start: 20070927
  8. COTRIM [Concomitant]
     Dates: start: 20070615
  9. COTRIM [Concomitant]
     Dates: start: 20070901
  10. CLONIDINE [Concomitant]
     Dates: start: 20070626
  11. CLONIDINE [Concomitant]
     Dates: start: 20071001
  12. NEBILET [Concomitant]
     Dates: start: 20070609
  13. AMLODIPINE [Concomitant]
     Dates: start: 20070616
  14. AMLODIPINE [Concomitant]
     Dates: start: 20071001
  15. TORSEMIDE [Concomitant]
     Dates: start: 20071108
  16. ASPIRIN [Concomitant]
     Dates: start: 20071001
  17. FERROSANOL DUODENAL [Concomitant]
     Dates: start: 20071001
  18. ALLOPURINOL [Concomitant]
     Dosage: UNIT: IE
     Dates: start: 20080103
  19. LEVEMIR [Concomitant]
     Dosage: UNIT: IE
     Dates: start: 20070901, end: 20080702
  20. LEVEMIR [Concomitant]
     Dates: start: 20080703
  21. ACTRAPID [Concomitant]
     Dosage: UNIT: IE
     Dates: start: 20070901

REACTIONS (1)
  - ANGIOSARCOMA [None]
